FAERS Safety Report 10337804 (Version 2)
Quarter: 2014Q3

REPORT INFORMATION
  Report Type: Spontaneous
  Country: US (occurrence: US)
  Receive Date: 20140724
  Receipt Date: 20140724
  Transmission Date: 20150326
  Serious: No
  Sender: FDA-Public Use
  Company Number: US-UNITED THERAPEUTICS-UTC-045958

PATIENT
  Sex: Female
  Weight: 67.13 kg

DRUGS (1)
  1. REMODULIN [Suspect]
     Active Substance: TREPROSTINIL
     Dosage: 0.036 UG/KG/MIN
     Route: 041
     Dates: start: 20140225

REACTIONS (13)
  - Gait disturbance [Unknown]
  - Nausea [Unknown]
  - Vomiting [Unknown]
  - Fatigue [Unknown]
  - Weight increased [Unknown]
  - Asthenia [Unknown]
  - Pain in jaw [Recovered/Resolved]
  - Pain in extremity [Recovering/Resolving]
  - Injection site pruritus [Unknown]
  - Dyspnoea [Unknown]
  - Dyspnoea exertional [Unknown]
  - Anxiety [Unknown]
  - Bone pain [Unknown]

NARRATIVE: CASE EVENT DATE: 2014
